FAERS Safety Report 13772009 (Version 1)
Quarter: 2017Q3

REPORT INFORMATION
  Report Type: Report from Study
  Country: PK (occurrence: PK)
  Receive Date: 20170720
  Receipt Date: 20170720
  Transmission Date: 20171127
  Serious: Yes (Other)
  Sender: FDA-Public Use
  Company Number: PHHY2017PK100457

PATIENT
  Age: 59 Year
  Sex: Female
  Weight: 67 kg

DRUGS (1)
  1. AFINITOR [Suspect]
     Active Substance: EVEROLIMUS
     Dosage: 5 MG, QD
     Route: 048
     Dates: start: 20161213, end: 20170706

REACTIONS (1)
  - Jaundice [Recovered/Resolved]

NARRATIVE: CASE EVENT DATE: 20170605
